FAERS Safety Report 4395995-9 (Version None)
Quarter: 2004Q2

REPORT INFORMATION
  Report Type: 
  Country: None (occurrence: None)
  Receive Date: 20040621
  Receipt Date: 20031117
  Transmission Date: 20050107
  Serious: Yes (Hospitalization, Other)
  Sender: FDA-Public Use
  Company Number: USA-2003-0010854

PATIENT
  Age: 33 Year
  Sex: Female
  Weight: 83.9 kg

DRUGS (12)
  1. OXYCONTIN [Suspect]
     Indication: PAIN
     Dosage: 20 MG, BID; ORAL
     Route: 048
  2. VALIUM [Suspect]
     Dosage: UNK UNK, UNK, UNKNOWN
     Route: 065
  3. PERCOCET [Concomitant]
  4. DARVOCET-N 100 [Concomitant]
  5. CLONAZEPAM [Concomitant]
  6. GABITRIL [Concomitant]
  7. WELLBUTRIN [Concomitant]
  8. NEXIUM [Concomitant]
  9. LEVOXYL [Concomitant]
  10. MULTIVITAMIN [Concomitant]
  11. MAGNESIUM CITRATE [Concomitant]
  12. FLEET RECTAROID ENEMA [Concomitant]

REACTIONS (24)
  - ABDOMINAL PAIN [None]
  - ANXIETY [None]
  - ASTHENIA [None]
  - BACK INJURY [None]
  - BACK PAIN [None]
  - CHILLS [None]
  - CONSTIPATION [None]
  - DEPRESSION [None]
  - DRUG DEPENDENCE [None]
  - DRUG INEFFECTIVE [None]
  - DRUG TOLERANCE [None]
  - DRUG WITHDRAWAL SYNDROME [None]
  - DRY MOUTH [None]
  - HYPOAESTHESIA [None]
  - INADEQUATE ANALGESIA [None]
  - INSOMNIA [None]
  - INTENTIONAL OVERDOSE [None]
  - MULTIPLE DRUG OVERDOSE [None]
  - NAUSEA [None]
  - NOCTURIA [None]
  - PAIN [None]
  - PARAESTHESIA [None]
  - POLLAKIURIA [None]
  - POLYSUBSTANCE ABUSE [None]
